FAERS Safety Report 21362882 (Version 4)
Quarter: 2022Q4

REPORT INFORMATION
  Report Type: Spontaneous
  Country: US (occurrence: US)
  Receive Date: 20220922
  Receipt Date: 20221003
  Transmission Date: 20230112
  Serious: No
  Sender: FDA-Public Use
  Company Number: US-JNJFOC-20220924494

PATIENT
  Age: 70 Year
  Sex: Female

DRUGS (1)
  1. IMODIUM MULTI-SYMPTOM RELIEF [Suspect]
     Active Substance: DIMETHICONE\LOPERAMIDE HYDROCHLORIDE
     Indication: Diarrhoea
     Dosage: THE FIRST DAY, SHE TOOK TWO CAPLETS AFTER HER FIRST BOUT OF DIARRHEA.THEN, LATER IN THE DAY SHE TOOK
     Route: 065
     Dates: start: 20220908, end: 20220910

REACTIONS (2)
  - Mucous stools [Unknown]
  - Drug ineffective [Unknown]

NARRATIVE: CASE EVENT DATE: 20220901
